FAERS Safety Report 15772488 (Version 3)
Quarter: 2019Q1

REPORT INFORMATION
  Report Type: Spontaneous
  Country: JP (occurrence: JP)
  Receive Date: 20181228
  Receipt Date: 20190125
  Transmission Date: 20190417
  Serious: Yes (Other)
  Sender: FDA-Public Use
  Company Number: JP-JNJFOC-20181233339

PATIENT
  Sex: Male

DRUGS (2)
  1. REMICADE [Suspect]
     Active Substance: INFLIXIMAB
     Indication: RHEUMATOID ARTHRITIS
     Route: 042
  2. REMICADE [Suspect]
     Active Substance: INFLIXIMAB
     Indication: RHEUMATOID ARTHRITIS
     Route: 042
     Dates: start: 201604, end: 201704

REACTIONS (20)
  - Angioedema [Unknown]
  - Ocular discomfort [Unknown]
  - Infusion related reaction [Unknown]
  - Dizziness [Unknown]
  - Musculoskeletal stiffness [Unknown]
  - Ear discomfort [Unknown]
  - Neoplasm malignant [Unknown]
  - Photosensitivity reaction [Unknown]
  - Diarrhoea [Unknown]
  - Headache [Unknown]
  - Muscular weakness [Unknown]
  - Sensory disturbance [Unknown]
  - Rash [Unknown]
  - Arthralgia [Unknown]
  - Pyrexia [Unknown]
  - Vomiting [Unknown]
  - Angina pectoris [Unknown]
  - Pulse abnormal [Unknown]
  - Nausea [Unknown]
  - Hyperhidrosis [Unknown]

NARRATIVE: CASE EVENT DATE: 201604
